FAERS Safety Report 8966577 (Version 1)
Quarter: 2012Q4

REPORT INFORMATION
  Report Type: 
  Country: US (occurrence: US)
  Receive Date: 20121217
  Receipt Date: 20121217
  Transmission Date: 20130627
  Serious: No
  Sender: FDA-Public Use
  Company Number: US-PFIZER INC-2012318492

PATIENT
  Age: 71 Year
  Sex: Female
  Weight: 86.17 kg

DRUGS (2)
  1. LIPITOR [Suspect]
     Indication: CHOLESTEROL
     Dosage: 20 mg, daily
     Route: 048
     Dates: start: 1999
  2. ZETIA [Concomitant]
     Indication: TRIGLYCERIDES
     Dosage: 10 mg, daily
     Route: 048

REACTIONS (1)
  - Malaise [Unknown]
